FAERS Safety Report 4283493-2 (Version None)
Quarter: 2004Q1

REPORT INFORMATION
  Report Type: 
  Country: None (occurrence: None)
  Receive Date: 20040115
  Receipt Date: 20031114
  Transmission Date: 20041129
  Serious: Yes (Hospitalization)
  Sender: FDA-Public Use
  Company Number: US-JNJFOC-20031003782

PATIENT
  Age: 85 Year
  Sex: Female

DRUGS (11)
  1. DOXIL [Suspect]
     Indication: NON-HODGKIN'S LYMPHOMA
     Dates: start: 20031015
  2. CYCLOPHOSPHAMIDE [Concomitant]
  3. HYDROXYDAUNOMYCIN (DOXORUBICIN) [Concomitant]
  4. ONCOVIN [Concomitant]
  5. PREDNISONE [Concomitant]
  6. EPOGEN [Concomitant]
  7. NEUPOGEN [Concomitant]
  8. COMPAZINE [Concomitant]
  9. NORVASC [Concomitant]
  10. BACTRIM [Concomitant]
  11. HYDROCODONE [Concomitant]

REACTIONS (5)
  - CONDITION AGGRAVATED [None]
  - FATIGUE [None]
  - NEUTROPENIA [None]
  - PYREXIA [None]
  - THROMBOCYTOPENIA [None]
